FAERS Safety Report 15190501 (Version 1)
Quarter: 2018Q3

REPORT INFORMATION
  Report Type: Spontaneous
  Country: US (occurrence: US)
  Receive Date: 20180724
  Receipt Date: 20180724
  Transmission Date: 20181010
  Serious: No
  Sender: FDA-Public Use
  Company Number: US-GLAXOSMITHKLINE-US2018127237

PATIENT
  Age: 61 Year
  Sex: Female

DRUGS (1)
  1. NICODERM CQ [Suspect]
     Active Substance: NICOTINE
     Indication: DRUG WITHDRAWAL MAINTENANCE THERAPY
     Dosage: 7 MG, UNK
     Dates: start: 20180713, end: 20180714

REACTIONS (5)
  - Application site pain [Not Recovered/Not Resolved]
  - Application site pruritus [Unknown]
  - Application site reaction [Not Recovered/Not Resolved]
  - Rash macular [Unknown]
  - Application site erythema [Not Recovered/Not Resolved]

NARRATIVE: CASE EVENT DATE: 20180713
